FAERS Safety Report 11045591 (Version 3)
Quarter: 2015Q3

REPORT INFORMATION
  Report Type: Spontaneous
  Country: US (occurrence: US)
  Receive Date: 20150417
  Receipt Date: 20150803
  Transmission Date: 20151125
  Serious: Yes (Other)
  Sender: FDA-Public Use
  Company Number: US-GLAXOSMITHKLINE-US2015GSK051664

PATIENT
  Age: 46 Year

DRUGS (1)
  1. ADVAIR HFA [Suspect]
     Active Substance: FLUTICASONE PROPIONATE\SALMETEROL XINAFOATE
     Indication: PRODUCT USED FOR UNKNOWN INDICATION

REACTIONS (32)
  - Pneumonia [Unknown]
  - Nervousness [Unknown]
  - Bone fragmentation [Unknown]
  - Fracture [Not Recovered/Not Resolved]
  - Injury [Not Recovered/Not Resolved]
  - Osteochondrosis [Unknown]
  - Musculoskeletal disorder [Not Recovered/Not Resolved]
  - Back disorder [Not Recovered/Not Resolved]
  - Adverse event [Not Recovered/Not Resolved]
  - Chondropathy [Not Recovered/Not Resolved]
  - Arthralgia [Not Recovered/Not Resolved]
  - Movement disorder [Unknown]
  - Back pain [Not Recovered/Not Resolved]
  - Bone loss [Not Recovered/Not Resolved]
  - Pathological fracture [Unknown]
  - Osteoporosis [Not Recovered/Not Resolved]
  - Muscle twitching [Unknown]
  - Pain [Not Recovered/Not Resolved]
  - Osteopenia [Not Recovered/Not Resolved]
  - Eyelid function disorder [Unknown]
  - Tendon disorder [Not Recovered/Not Resolved]
  - Soft tissue atrophy [Not Recovered/Not Resolved]
  - Liposarcoma [Unknown]
  - Tremor [Unknown]
  - Affective disorder [Not Recovered/Not Resolved]
  - Arthropathy [Not Recovered/Not Resolved]
  - Spinal deformity [Not Recovered/Not Resolved]
  - Ankle operation [Unknown]
  - Wrist surgery [Unknown]
  - Nervous system disorder [Unknown]
  - Depression [Not Recovered/Not Resolved]
  - Fear [Not Recovered/Not Resolved]
